FAERS Safety Report 20306700 (Version 1)
Quarter: 2022Q1

REPORT INFORMATION
  Report Type: Spontaneous
  Country: US (occurrence: US)
  Receive Date: 20220106
  Receipt Date: 20220106
  Transmission Date: 20220423
  Serious: Yes (Other)
  Sender: FDA-Public Use
  Company Number: US-TEVA-2021-US-1995070

PATIENT
  Age: 2 Year
  Sex: Female

DRUGS (1)
  1. ALBUTEROL SULFATE [Suspect]
     Active Substance: ALBUTEROL SULFATE
     Indication: Asthma
     Dosage: TAKE 1 PUFF EVERY 4 HOURS AS NEEDED
     Route: 065

REACTIONS (11)
  - Vulvovaginal discomfort [Recovered/Resolved]
  - Vaginal haemorrhage [Recovered/Resolved]
  - Vulvovaginal erythema [Recovered/Resolved]
  - Dysuria [Recovered/Resolved]
  - Victim of sexual abuse [Unknown]
  - Blood urine present [Recovered/Resolved]
  - Genital injury [Unknown]
  - Pollakiuria [Recovered/Resolved]
  - Extra dose administered [Unknown]
  - Wrong technique in product usage process [Unknown]
  - Product use issue [Unknown]

NARRATIVE: CASE EVENT DATE: 20210101
